FAERS Safety Report 6233253-8 (Version None)
Quarter: 2009Q2

REPORT INFORMATION
  Report Type: 
  Country: None (occurrence: None)
  Receive Date: 20090617
  Receipt Date: 20090610
  Transmission Date: 20091009
  Serious: Yes (Hospitalization)
  Sender: FDA-Public Use
  Company Number: ES-WATSON-2009-04329

PATIENT
  Age: 50 Year
  Sex: Female

DRUGS (6)
  1. IBUPROFEN TABLETS [Suspect]
     Indication: SINUSITIS
     Dosage: UNK
     Route: 048
  2. AMOXICILLIN W/CLAVULANATE POTASSIUM [Suspect]
     Indication: SINUSITIS
     Dosage: UNK
     Route: 048
  3. ADRENALINE                         /00003901/ [Suspect]
     Indication: ANAPHYLACTIC SHOCK
     Dosage: 1 MG, UNKNOWN
     Route: 058
  4. METAMIZOL                          /00039502/ [Concomitant]
     Indication: SINUSITIS
     Dosage: UNK
     Route: 030
  5. SALMETEROL [Concomitant]
     Indication: ASTHMA
     Dosage: UNK
     Route: 065
  6. FLUTICASONE [Concomitant]
     Indication: ASTHMA
     Dosage: UNK
     Route: 065

REACTIONS (3)
  - ACUTE MYOCARDIAL INFARCTION [None]
  - ANAPHYLACTIC SHOCK [None]
  - KOUNIS SYNDROME [None]
